FAERS Safety Report 9450845 (Version 2)
Quarter: 2013Q3

REPORT INFORMATION
  Report Type: Report from Study
  Country: US (occurrence: US)
  Receive Date: 20130809
  Receipt Date: 20130816
  Transmission Date: 20140515
  Serious: Yes (Other)
  Sender: FDA-Public Use
  Company Number: US-PFIZER INC-2013232639

PATIENT
  Age: 70 Year
  Sex: Female

DRUGS (2)
  1. XANAX [Suspect]
     Dosage: UNK
  2. COPAXONE [Suspect]
     Indication: MULTIPLE SCLEROSIS
     Dosage: UNK
     Dates: start: 20041019

REACTIONS (6)
  - Loss of consciousness [Unknown]
  - Fall [Unknown]
  - Injection site infection [Not Recovered/Not Resolved]
  - Diarrhoea [Unknown]
  - Tooth disorder [Unknown]
  - Gingivitis [Unknown]
